FAERS Safety Report 13476151 (Version 1)
Quarter: 2017Q2

REPORT INFORMATION
  Report Type: Spontaneous
  Country: US (occurrence: US)
  Receive Date: 20170424
  Receipt Date: 20170424
  Transmission Date: 20170830
  Serious: Yes (Life-Threatening, Hospitalization, Disabling)
  Sender: FDA-Public Use
  Company Number: None

PATIENT
  Age: 39 Year
  Sex: Male
  Weight: 74.25 kg

DRUGS (9)
  1. NIACIN. [Concomitant]
     Active Substance: NIACIN
  2. METFORMIN [Concomitant]
     Active Substance: METFORMIN HYDROCHLORIDE
  3. PAROEXTINE [Concomitant]
  4. SIMVASTATIN. [Concomitant]
     Active Substance: SIMVASTATIN
  5. VITAMIN B12 [Concomitant]
     Active Substance: CYANOCOBALAMIN
  6. GABAPENTIN. [Concomitant]
     Active Substance: GABAPENTIN
  7. PROPECIA [Suspect]
     Active Substance: FINASTERIDE
     Indication: ALOPECIA
  8. INVOKANA [Concomitant]
     Active Substance: CANAGLIFLOZIN
  9. LEVOTHYROXINE. [Concomitant]
     Active Substance: LEVOTHYROXINE

REACTIONS (8)
  - Multiple organ dysfunction syndrome [None]
  - Palpitations [None]
  - Cerebrovascular accident [None]
  - Erectile dysfunction [None]
  - Infection [None]
  - Tinnitus [None]
  - Pancreatitis necrotising [None]
  - Loss of libido [None]

NARRATIVE: CASE EVENT DATE: 20130319
